FAERS Safety Report 7477905-0 (Version None)
Quarter: 2011Q2

REPORT INFORMATION
  Report Type: 
  Country: None (occurrence: None)
  Receive Date: 20110511
  Receipt Date: 20110511
  Transmission Date: 20111010
  Serious: No
  Sender: FDA-Public Use
  Company Number: None

PATIENT
  Age: 18 Year
  Sex: Female
  Weight: 61.24 kg

DRUGS (1)
  1. REMICADE [Suspect]
     Indication: CROHN'S DISEASE
     Dosage: 300MG ONCE 041 (IVPB)
     Route: 042
     Dates: start: 20110506

REACTIONS (7)
  - DYSPNOEA [None]
  - VOMITING [None]
  - BACK PAIN [None]
  - CHEST DISCOMFORT [None]
  - ABDOMINAL PAIN UPPER [None]
  - INFUSION RELATED REACTION [None]
  - NO REACTION ON PREVIOUS EXPOSURE TO DRUG [None]
